FAERS Safety Report 7320770-2 (Version None)
Quarter: 2011Q1

REPORT INFORMATION
  Report Type: 
  Country: None (occurrence: None)
  Receive Date: 20110228
  Receipt Date: 20110222
  Transmission Date: 20110831
  Serious: Yes (Other)
  Sender: FDA-Public Use
  Company Number: ES-ABBOTT-11P-144-0706996-00

PATIENT
  Age: 80 Year
  Sex: Male
  Weight: 68 kg

DRUGS (1)
  1. PROCRIN TRIMESTRAL [Suspect]
     Indication: PROSTATE CANCER
     Route: 030
     Dates: start: 20070715, end: 20110127

REACTIONS (2)
  - ENCAPSULATION REACTION [None]
  - INJECTION SITE ABSCESS [None]
